FAERS Safety Report 6696878-1 (Version None)
Quarter: 2010Q2

REPORT INFORMATION
  Report Type: 
  Country: None (occurrence: None)
  Receive Date: 20100421
  Receipt Date: 20100406
  Transmission Date: 20101027
  Serious: Yes (Other)
  Sender: FDA-Public Use
  Company Number: FKO201000124

PATIENT
  Age: 57 Year
  Sex: Male

DRUGS (4)
  1. METHOTREXATE [Suspect]
     Indication: PSORIASIS
     Dosage: .0714 MG (7.5 MG, 1 IN 1 WK) ORAL
     Route: 048
  2. FOLIC ACID (FOLIC ACID) (FOLIC ACID) [Concomitant]
  3. ACITRETIN (ACITRETIN) (ACITRETIN) [Concomitant]
  4. CYCLOSPORINE [Concomitant]

REACTIONS (3)
  - CARDIOMEGALY [None]
  - ELECTROCARDIOGRAM QT INTERVAL ABNORMAL [None]
  - PLEUROPERICARDITIS [None]
